FAERS Safety Report 6057021-5 (Version None)
Quarter: 2009Q1

REPORT INFORMATION
  Report Type: 
  Country: None (occurrence: None)
  Receive Date: 20090126
  Receipt Date: 20090107
  Transmission Date: 20090719
  Serious: Yes (Death)
  Sender: FDA-Public Use
  Company Number: B0553661A

PATIENT
  Age: 46 Year
  Sex: Male

DRUGS (2)
  1. BUPROPION HCL [Suspect]
     Dosage: ORAL
     Route: 048
  2. ETHANOL (ALCOHOL) (FORMULATION UNKNOWN) [Suspect]

REACTIONS (1)
  - COMPLETED SUICIDE [None]
